FAERS Safety Report 9629976 (Version 1)
Quarter: 2013Q4

REPORT INFORMATION
  Report Type: Spontaneous
  Country: GB (occurrence: GB)
  Receive Date: 20131017
  Receipt Date: 20131017
  Transmission Date: 20140711
  Serious: Yes (Other)
  Sender: FDA-Public Use
  Company Number: GB-PFIZER INC-2013292102

PATIENT
  Age: 31 Year
  Sex: Male

DRUGS (3)
  1. PHENYTOIN [Suspect]
     Indication: EPILEPSY
     Dosage: 200 MG/DAY
  2. PHENYTOIN [Suspect]
     Dosage: 300 MG/DAY
  3. PHENOBARBITONE [Concomitant]
     Indication: EPILEPSY
     Dosage: 60 MG/DAY

REACTIONS (7)
  - Toxicity to various agents [Recovering/Resolving]
  - Anticonvulsant drug level above therapeutic [Unknown]
  - Dyskinesia [Recovering/Resolving]
  - Dystonia [Recovering/Resolving]
  - Tremor [Recovering/Resolving]
  - Chorea [Recovering/Resolving]
  - Dysarthria [Recovering/Resolving]
